FAERS Safety Report 4822253-8 (Version None)
Quarter: 2005Q4

REPORT INFORMATION
  Report Type: 
  Country: None (occurrence: None)
  Receive Date: 20051107
  Receipt Date: 20050322
  Transmission Date: 20060501
  Serious: Yes (Death, Hospitalization, Other)
  Sender: FDA-Public Use
  Company Number: JP-MERCK-0503USA04718

PATIENT
  Age: 6 Year
  Sex: Female
  Weight: 16 kg

DRUGS (14)
  1. TIMOPTIC-XE [Suspect]
     Indication: GLAUCOMA
     Route: 047
     Dates: start: 20050317, end: 20050319
  2. AZOPT DROPS [Concomitant]
     Route: 047
     Dates: start: 20050317, end: 20050319
  3. XALATAN [Concomitant]
     Route: 047
     Dates: start: 20050317, end: 20050318
  4. DEPAKENE [Concomitant]
     Indication: EPILEPSY
     Route: 048
     Dates: start: 19990601
  5. PYDOXAL [Concomitant]
     Indication: EPILEPSY
     Route: 048
     Dates: start: 19990601
  6. ERYTHROCIN [Concomitant]
     Indication: RESPIRATORY FAILURE
     Route: 048
     Dates: start: 20000511
  7. MEPTIN [Concomitant]
     Indication: BRONCHIECTASIS
     Route: 048
     Dates: start: 20000420
  8. MUCODYNE [Concomitant]
     Indication: SPUTUM RETENTION
     Route: 048
     Dates: start: 20000413
  9. AMBROXOL HYDROCHLORIDE [Concomitant]
     Indication: SPUTUM RETENTION
     Route: 048
     Dates: start: 20000414
  10. RIZABEN [Concomitant]
     Indication: GRANULOMA
     Route: 048
     Dates: start: 20001207
  11. TERNELIN [Concomitant]
     Route: 048
  12. PHELLOBERIN [Concomitant]
     Route: 048
  13. ENTOMIN [Concomitant]
     Route: 042
  14. ZINC SULFATE [Concomitant]
     Route: 047

REACTIONS (15)
  - ABDOMINAL DISTENSION [None]
  - ANURIA [None]
  - BLOOD PRESSURE DECREASED [None]
  - BLOOD SODIUM DECREASED [None]
  - CARDIAC FAILURE CONGESTIVE [None]
  - ENTEROCOCCAL INFECTION [None]
  - FATIGUE [None]
  - GENERALISED OEDEMA [None]
  - HEART RATE DECREASED [None]
  - PALLOR [None]
  - PERICARDIAL EFFUSION [None]
  - PLEURAL EFFUSION [None]
  - PSEUDOMONAL SEPSIS [None]
  - RENAL FAILURE [None]
  - SEPSIS [None]
